FAERS Safety Report 23392201 (Version 4)
Quarter: 2025Q1

REPORT INFORMATION
  Report Type: Spontaneous
  Country: US (occurrence: US)
  Receive Date: 20240111
  Receipt Date: 20250115
  Transmission Date: 20250408
  Serious: No
  Sender: PFIZER
  Company Number: US-PFIZER INC-202400008522

PATIENT
  Age: 55 Year
  Sex: Male

DRUGS (8)
  1. XELJANZ [Suspect]
     Active Substance: TOFACITINIB CITRATE
     Dosage: 5 MG, 2X/DAY
     Route: 048
     Dates: start: 202308
  2. ACETAMINOPHEN\HYDROCODONE [Concomitant]
     Active Substance: ACETAMINOPHEN\HYDROCODONE
  3. ASPIRIN [Concomitant]
     Active Substance: ASPIRIN
  4. CYCLOBENZAPRINE [Concomitant]
     Active Substance: CYCLOBENZAPRINE
  5. METHYLPREDNISOLONE [Concomitant]
     Active Substance: METHYLPREDNISOLONE
  6. MELOXICAM [Concomitant]
     Active Substance: MELOXICAM
  7. TRAMADOL [Concomitant]
     Active Substance: TRAMADOL
  8. VITAMINS NOS [Concomitant]
     Active Substance: VITAMINS

REACTIONS (1)
  - Influenza [Recovering/Resolving]

NARRATIVE: CASE EVENT DATE: 20231201
